FAERS Safety Report 8333883-3 (Version None)
Quarter: 2012Q2

REPORT INFORMATION
  Report Type: 
  Country: None (occurrence: None)
  Receive Date: 20120503
  Receipt Date: 20120430
  Transmission Date: 20120825
  Serious: Yes (Hospitalization, Other)
  Sender: FDA-Public Use
  Company Number: HK-SANOFI-AVENTIS-2010SA059092

PATIENT
  Age: 83 Year
  Sex: Male

DRUGS (3)
  1. AMIODARONE HCL [Suspect]
     Route: 048
  2. MULTAQ [Suspect]
     Indication: ATRIAL FIBRILLATION
     Route: 048
  3. AMIODARONE HCL [Suspect]
     Indication: ATRIAL FIBRILLATION
     Route: 042

REACTIONS (4)
  - ORGANISING PNEUMONIA [None]
  - PULMONARY FIBROSIS [None]
  - DYSPNOEA [None]
  - ACUTE RESPIRATORY FAILURE [None]
